FAERS Safety Report 19702563 (Version 2)
Quarter: 2021Q3

REPORT INFORMATION
  Report Type: Spontaneous
  Country: MY (occurrence: MY)
  Receive Date: 20210815
  Receipt Date: 20210929
  Transmission Date: 20211014
  Serious: Yes (Hospitalization)
  Sender: FDA-Public Use
  Company Number: NVSC2021MY174712

PATIENT
  Age: 7 Year
  Sex: Female
  Weight: 27.5 kg

DRUGS (5)
  1. SANDIMMUN NEORAL [Suspect]
     Active Substance: CYCLOSPORINE
     Indication: NEPHROTIC SYNDROME
     Dosage: 25 MG, UNKNOWN
     Route: 065
  2. BACTRIM [Concomitant]
     Active Substance: SULFAMETHOXAZOLE\TRIMETHOPRIM
     Indication: PERITONITIS BACTERIAL
     Dosage: 50 MG, QD
     Route: 065
     Dates: start: 20210704
  3. SANDIMMUN NEORAL [Suspect]
     Active Substance: CYCLOSPORINE
     Dosage: 50 MG, BID
     Route: 048
     Dates: start: 20210703
  4. ENALAPRIL [Concomitant]
     Active Substance: ENALAPRIL
     Indication: NEPHROTIC SYNDROME
     Dosage: 2.5 MG, BID
     Route: 065
     Dates: start: 20210607
  5. MODURETIC 5?50 [Concomitant]
     Active Substance: AMILORIDE HYDROCHLORIDE\HYDROCHLOROTHIAZIDE
     Indication: NEPHROTIC SYNDROME
     Dosage: 0.5 MG, BID
     Route: 065
     Dates: start: 20210531

REACTIONS (6)
  - Dysphagia [Recovering/Resolving]
  - Periorbital swelling [Recovering/Resolving]
  - Fluid overload [Unknown]
  - Product taste abnormal [Recovering/Resolving]
  - Product odour abnormal [Recovering/Resolving]
  - Swelling face [Recovering/Resolving]

NARRATIVE: CASE EVENT DATE: 20210703
